FAERS Safety Report 8206990-3 (Version None)
Quarter: 2012Q1

REPORT INFORMATION
  Report Type: 
  Country: None (occurrence: None)
  Receive Date: 20120314
  Receipt Date: 20120302
  Transmission Date: 20120608
  Serious: Yes (Other)
  Sender: FDA-Public Use
  Company Number: US-ELI_LILLY_AND_COMPANY-US201108000316

PATIENT
  Sex: Female

DRUGS (21)
  1. METFORMIN HCL [Concomitant]
     Indication: DIABETES MELLITUS
  2. CALCIUM W/VITAMIN D NOS [Concomitant]
     Dosage: 600 MG, BID
  3. WARFARIN SODIUM [Concomitant]
  4. GEMFIBROZIL [Concomitant]
     Indication: BLOOD CHOLESTEROL ABNORMAL
  5. FORTEO [Suspect]
     Dosage: 20 UG, QD
     Route: 065
  6. FORTEO [Suspect]
     Dosage: 20 UG, QD
  7. FORTEO [Suspect]
     Dosage: 20 UG, QD
  8. FISH OIL [Concomitant]
     Dosage: 1000 MG, BID
  9. FORTEO [Suspect]
     Dosage: 20 UG, QD
  10. FORTEO [Suspect]
     Dosage: 20 UG, QD
     Route: 065
  11. THYROID [Concomitant]
     Dosage: 100 MG, QD
  12. VITAMIN TAB [Concomitant]
  13. GLIPIZIDE [Concomitant]
     Indication: DIABETES MELLITUS
  14. FORTEO [Suspect]
     Indication: OSTEOPOROSIS
     Dosage: 20 UG, QD
     Route: 065
     Dates: start: 20110718
  15. LANSOPRAZOLE [Concomitant]
  16. LOVASTATIN [Concomitant]
     Indication: BLOOD CHOLESTEROL ABNORMAL
  17. FORTEO [Suspect]
     Dosage: 20 UG, QD
  18. METAGLIP [Concomitant]
     Indication: DIABETES MELLITUS
     Dosage: UNK, BID
  19. FORTEO [Suspect]
     Dosage: 20 UG, QD
  20. WARFARIN SODIUM [Concomitant]
     Dosage: 5 MG, QD
  21. PREVACID [Concomitant]
     Dosage: 30 MG, BID

REACTIONS (26)
  - MEMORY IMPAIRMENT [None]
  - CONFUSIONAL STATE [None]
  - MUSCULAR WEAKNESS [None]
  - FALL [None]
  - LOSS OF CONSCIOUSNESS [None]
  - ARTHROPATHY [None]
  - LIMB INJURY [None]
  - OEDEMA PERIPHERAL [None]
  - NAUSEA [None]
  - PNEUMONIA [None]
  - CONTUSION [None]
  - EXOSTOSIS [None]
  - CEREBROVASCULAR ACCIDENT [None]
  - FEELING COLD [None]
  - LUNG DISORDER [None]
  - PAIN [None]
  - DYSPNOEA [None]
  - CHILLS [None]
  - PAIN IN EXTREMITY [None]
  - MUSCLE SPASMS [None]
  - AMNESIA [None]
  - BACK PAIN [None]
  - ARTHRALGIA [None]
  - CHRONIC OBSTRUCTIVE PULMONARY DISEASE [None]
  - SPEECH DISORDER [None]
  - CHOKING [None]
